FAERS Safety Report 4734748-6 (Version None)
Quarter: 2005Q3

REPORT INFORMATION
  Report Type: 
  Country: None (occurrence: None)
  Receive Date: 20050804
  Receipt Date: 20050324
  Transmission Date: 20060218
  Serious: Yes (Other)
  Sender: FDA-Public Use
  Company Number: SER/8/3930

PATIENT
  Sex: Female

DRUGS (1)
  1. PAROXETINE HCL [Suspect]

REACTIONS (4)
  - AGGRESSION [None]
  - AGORAPHOBIA [None]
  - COMPLETED SUICIDE [None]
  - ILL-DEFINED DISORDER [None]
